FAERS Safety Report 4580111-0 (Version None)
Quarter: 2005Q1

REPORT INFORMATION
  Report Type: 
  Country: None (occurrence: None)
  Receive Date: 20050127
  Receipt Date: 20040927
  Transmission Date: 20050727
  Serious: No
  Sender: FDA-Public Use
  Company Number: USA040979500

PATIENT
  Sex: Female

DRUGS (5)
  1. STRATTERA [Suspect]
     Indication: ATTENTION DEFICIT/HYPERACTIVITY DISORDER
     Dosage: 40 MG/2 DAY
     Dates: start: 20040917
  2. ZYPREXA [Suspect]
     Indication: BIPOLAR DISORDER
     Dates: end: 20040901
  3. ALBUTEROL [Concomitant]
  4. PRILOSEC [Concomitant]
  5. FLUOXETINE [Concomitant]

REACTIONS (7)
  - DYSURIA [None]
  - INSOMNIA [None]
  - JOINT SWELLING [None]
  - MIGRAINE [None]
  - OEDEMA PERIPHERAL [None]
  - VISION BLURRED [None]
  - WHEEZING [None]
